FAERS Safety Report 5204929-6 (Version None)
Quarter: 2007Q1

REPORT INFORMATION
  Report Type: 
  Country: None (occurrence: None)
  Receive Date: 20070105
  Receipt Date: 20061221
  Transmission Date: 20070707
  Serious: Yes (Death, Other)
  Sender: FDA-Public Use
  Company Number: GXKR2006GB08463

PATIENT
  Age: 74 Year
  Sex: Male

DRUGS (2)
  1. WARFARIN SODIUM [Suspect]
     Indication: ATRIAL FIBRILLATION
     Dosage: ORAL
     Route: 048
     Dates: start: 20060201
  2. DILTIAZEM [Concomitant]

REACTIONS (2)
  - BRAIN STEM HAEMORRHAGE [None]
  - HYPERTENSION [None]
